FAERS Safety Report 21667385 (Version 1)
Quarter: 2022Q4

REPORT INFORMATION
  Report Type: Spontaneous
  Country: CN (occurrence: None)
  Receive Date: 20221201
  Receipt Date: 20221201
  Transmission Date: 20230113
  Serious: Yes (Other)
  Sender: FDA-Public Use
  Company Number: CN-ROCHE-3228021

PATIENT
  Age: 72 Year
  Sex: Male

DRUGS (13)
  1. GAZYVA [Suspect]
     Active Substance: OBINUTUZUMAB
     Indication: Mantle cell lymphoma
     Route: 065
     Dates: start: 20220626
  2. GAZYVA [Suspect]
     Active Substance: OBINUTUZUMAB
     Route: 065
     Dates: start: 20220802
  3. RITUXIMAB [Concomitant]
     Active Substance: RITUXIMAB
     Indication: Mantle cell lymphoma
     Dosage: 08-APR-2020, 07-MAY-2020
  4. RITUXIMAB [Concomitant]
     Active Substance: RITUXIMAB
     Dosage: 26-JUN-2020, 24-JUL-2020, 17-AUG-2020
     Dates: start: 20200531
  5. CYCLOPHOSPHAMIDE [Concomitant]
     Active Substance: CYCLOPHOSPHAMIDE
     Indication: Mantle cell lymphoma
     Dosage: 08-APR-2020, 07-MAY 2020
  6. DOXORUBICIN [Concomitant]
     Active Substance: DOXORUBICIN
     Indication: Mantle cell lymphoma
     Dosage: 08-APR-2020, 07-MAY 2020
  7. VINCRISTINE [Concomitant]
     Active Substance: VINCRISTINE
     Indication: Mantle cell lymphoma
     Dosage: 08-APR-2020, 07-MAY 2020
  8. PREDNISONE [Concomitant]
     Active Substance: PREDNISONE
     Indication: Mantle cell lymphoma
     Dosage: 08-APR-2020, 07-MAY 2020
  9. IBRUTINIB [Concomitant]
     Active Substance: IBRUTINIB
     Indication: Mantle cell lymphoma
     Dosage: 26-JUN-2020, 24-JUL-2020, 17-AUG-2020
     Dates: start: 20200531
  10. BENDAMUSTINE [Concomitant]
     Active Substance: BENDAMUSTINE
     Indication: Mantle cell lymphoma
     Dosage: 26-JUN-2020, 24-JUL-2020, 17-AUG-2020
  11. ZANUBRUTINIB [Concomitant]
     Active Substance: ZANUBRUTINIB
     Indication: Mantle cell lymphoma
     Dates: start: 20220626
  12. ZANUBRUTINIB [Concomitant]
     Active Substance: ZANUBRUTINIB
     Dates: start: 20220802
  13. LENALIDOMIDE [Concomitant]
     Active Substance: LENALIDOMIDE
     Indication: Mantle cell lymphoma
     Dosage: DAY1-10
     Dates: start: 20220626

REACTIONS (2)
  - Off label use [Unknown]
  - Myelosuppression [Not Recovered/Not Resolved]
